FAERS Safety Report 14188917 (Version 2)
Quarter: 2017Q4

REPORT INFORMATION
  Report Type: Spontaneous
  Country: US (occurrence: US)
  Receive Date: 20171115
  Receipt Date: 20171115
  Transmission Date: 20180321
  Serious: Yes (Other)
  Sender: FDA-Public Use
  Company Number: US-009507513-1711USA005046

PATIENT
  Age: 35 Year
  Sex: Female
  Weight: 70.3 kg

DRUGS (6)
  1. NEXPLANON [Suspect]
     Active Substance: ETONOGESTREL
     Indication: CONTRACEPTION
     Dosage: LEFT ARM-IMPLANT, EVERY 3 YEARS
     Route: 059
     Dates: start: 201603
  2. ADDERALL [Concomitant]
     Active Substance: AMPHETAMINE ASPARTATE\AMPHETAMINE SULFATE\DEXTROAMPHETAMINE SACCHARATE\DEXTROAMPHETAMINE SULFATE
     Dosage: 20 MG, UNK
  3. CITALOPRAM HYDROBROMIDE. [Concomitant]
     Active Substance: CITALOPRAM HYDROBROMIDE
     Dosage: 40 MG, UNK
  4. KLONOPIN [Concomitant]
     Active Substance: CLONAZEPAM
  5. HYDROXYZINE PAMOATE. [Concomitant]
     Active Substance: HYDROXYZINE PAMOATE
     Dosage: 50 MG, UNK
  6. OLANZAPINE. [Concomitant]
     Active Substance: OLANZAPINE
     Dosage: 20 MG, UNK

REACTIONS (10)
  - Unintended pregnancy [Not Recovered/Not Resolved]
  - Galactorrhoea [Unknown]
  - Dizziness [Unknown]
  - Breast pain [Unknown]
  - Pregnancy with implant contraceptive [Not Recovered/Not Resolved]
  - Depression [Unknown]
  - Menorrhagia [Unknown]
  - Back pain [Unknown]
  - Mood swings [Unknown]
  - Abdominal pain upper [Unknown]

NARRATIVE: CASE EVENT DATE: 2017
